FAERS Safety Report 8931329 (Version 1)
Quarter: 2012Q4

REPORT INFORMATION
  Report Type: 
  Country: CO (occurrence: CO)
  Receive Date: 20121128
  Receipt Date: 20121128
  Transmission Date: 20130627
  Serious: Yes (Hospitalization)
  Sender: FDA-Public Use
  Company Number: CO-PFIZER INC-2012297692

PATIENT
  Sex: Male

DRUGS (1)
  1. CARDURAN NEO [Suspect]
     Indication: PROSTATITIS
     Dosage: 4 mg, 1x/day
     Route: 048
     Dates: start: 20121107, end: 20121107

REACTIONS (3)
  - Syncope [Recovered/Resolved]
  - Respiratory disorder [Recovered/Resolved]
  - Blood pressure decreased [Recovered/Resolved]
